FAERS Safety Report 10557431 (Version 1)
Quarter: 2014Q4

REPORT INFORMATION
  Report Type: Spontaneous
  Country: US (occurrence: None)
  Receive Date: 20141030
  Receipt Date: 20141030
  Transmission Date: 20150529
  Serious: Yes (Other)
  Sender: FDA-Public Use
  Company Number: None

PATIENT
  Age: 25 Year
  Sex: Female
  Weight: 58.97 kg

DRUGS (1)
  1. MIRENA [Suspect]
     Active Substance: LEVONORGESTREL

REACTIONS (4)
  - Heart rate decreased [None]
  - Palpitations [None]
  - Adnexa uteri pain [None]
  - Chest pain [None]

NARRATIVE: CASE EVENT DATE: 20141028
